FAERS Safety Report 5930434-5 (Version None)
Quarter: 2008Q4

REPORT INFORMATION
  Report Type: 
  Country: None (occurrence: None)
  Receive Date: 20081022
  Receipt Date: 20081006
  Transmission Date: 20090506
  Serious: Yes (Other)
  Sender: FDA-Public Use
  Company Number: 8037673

PATIENT
  Age: 17 Year
  Sex: Female
  Weight: 68 kg

DRUGS (2)
  1. LORTAB [Suspect]
     Dosage: 10 MG TWICE PO
     Route: 048
     Dates: start: 20080729, end: 20080729
  2. NAPROXEN [Concomitant]

REACTIONS (3)
  - AGGRESSION [None]
  - HEADACHE [None]
  - SELF-MEDICATION [None]
